FAERS Safety Report 6496563-5 (Version None)
Quarter: 2009Q4

REPORT INFORMATION
  Report Type: 
  Country: None (occurrence: None)
  Receive Date: 20091214
  Receipt Date: 20091204
  Transmission Date: 20100525
  Serious: Yes (Hospitalization)
  Sender: FDA-Public Use
  Company Number: DE-B.I. PHARMACEUTICALS,INC./RIDGEFIELD-2009-DE-07417DE

PATIENT
  Sex: Female
  Weight: 54 kg

DRUGS (3)
  1. VIRAMUNE [Suspect]
     Indication: HIV INFECTION
     Dosage: 400 MG
     Route: 048
     Dates: start: 19990101
  2. COMBIVIR [Concomitant]
     Indication: HIV INFECTION
     Dates: start: 19981201
  3. COMBIVIR [Concomitant]
     Dosage: 2 ANZ
     Route: 048
     Dates: start: 19990101

REACTIONS (1)
  - CAESAREAN SECTION [None]
